FAERS Safety Report 16691370 (Version 1)
Quarter: 2019Q3

REPORT INFORMATION
  Report Type: Report from Study
  Country: KR (occurrence: KR)
  Receive Date: 20190812
  Receipt Date: 20190812
  Transmission Date: 20191004
  Serious: Yes (Death, Hospitalization, Other)
  Sender: FDA-Public Use
  Company Number: KR-ROCHE-2361537

PATIENT
  Age: 74 Year
  Sex: Male
  Weight: 69 kg

DRUGS (15)
  1. ETOPOSIDE. [Suspect]
     Active Substance: ETOPOSIDE
     Route: 042
     Dates: start: 20190620, end: 20190620
  2. ETOPOSIDE. [Suspect]
     Active Substance: ETOPOSIDE
     Route: 042
     Dates: start: 20190711, end: 20190711
  3. CARBOPLATIN. [Suspect]
     Active Substance: CARBOPLATIN
     Indication: SMALL CELL LUNG CANCER
     Route: 042
     Dates: start: 20190619, end: 20190619
  4. ETOPOSIDE. [Suspect]
     Active Substance: ETOPOSIDE
     Route: 042
     Dates: start: 20190730, end: 20190730
  5. ATEZOLIZUMAB. [Suspect]
     Active Substance: ATEZOLIZUMAB
     Route: 042
     Dates: start: 20190709, end: 20190709
  6. ETOPOSIDE. [Suspect]
     Active Substance: ETOPOSIDE
     Route: 042
     Dates: start: 20190709, end: 20190709
  7. ATEZOLIZUMAB. [Suspect]
     Active Substance: ATEZOLIZUMAB
     Indication: SMALL CELL LUNG CANCER
     Route: 042
     Dates: start: 20190619, end: 20190619
  8. ETOPOSIDE. [Suspect]
     Active Substance: ETOPOSIDE
     Indication: SMALL CELL LUNG CANCER
     Route: 042
     Dates: start: 20190619, end: 20190619
  9. ETOPOSIDE. [Suspect]
     Active Substance: ETOPOSIDE
     Route: 042
     Dates: start: 20190621, end: 20190621
  10. CARBOPLATIN. [Suspect]
     Active Substance: CARBOPLATIN
     Route: 042
     Dates: start: 20190709, end: 20190709
  11. ETOPOSIDE. [Suspect]
     Active Substance: ETOPOSIDE
     Route: 042
     Dates: start: 20190710, end: 20190710
  12. ETOPOSIDE. [Suspect]
     Active Substance: ETOPOSIDE
     Route: 042
     Dates: start: 20190731, end: 20190731
  13. ATEZOLIZUMAB. [Suspect]
     Active Substance: ATEZOLIZUMAB
     Route: 042
     Dates: start: 20190729, end: 20190729
  14. CARBOPLATIN. [Suspect]
     Active Substance: CARBOPLATIN
     Route: 042
     Dates: start: 20190729, end: 20190729
  15. ETOPOSIDE. [Suspect]
     Active Substance: ETOPOSIDE
     Route: 042
     Dates: start: 20190729, end: 20190729

REACTIONS (3)
  - Septic shock [Fatal]
  - Neutrophil count decreased [Recovered/Resolved]
  - Colitis [Fatal]

NARRATIVE: CASE EVENT DATE: 20190723
